FAERS Safety Report 14778756 (Version 1)
Quarter: 2018Q2

REPORT INFORMATION
  Report Type: Spontaneous
  Country: US (occurrence: US)
  Receive Date: 20180412
  Receipt Date: 20180412
  Transmission Date: 20180711
  Serious: No
  Sender: FDA-Public Use
  Company Number: None

PATIENT
  Age: 59 Year
  Sex: Female

DRUGS (1)
  1. IMATINIB 400MG TEVA [Suspect]
     Active Substance: IMATINIB
     Indication: SOFT TISSUE SARCOMA
     Dates: start: 20150404

REACTIONS (3)
  - Middle insomnia [None]
  - Restless legs syndrome [None]
  - Pain in extremity [None]

NARRATIVE: CASE EVENT DATE: 20180320
